FAERS Safety Report 16414136 (Version 1)
Quarter: 2019Q2

REPORT INFORMATION
  Report Type: Spontaneous
  Country: US (occurrence: US)
  Receive Date: 20190503
  Receipt Date: 20190503
  Transmission Date: 20190711
  Serious: Yes (Disabling, Other)
  Sender: FDA-Public Use
  Company Number: None

PATIENT
  Age: 75 Year
  Sex: Female
  Weight: 79.38 kg

DRUGS (11)
  1. KRULL [Concomitant]
  2. ELIQUIS [Suspect]
     Active Substance: APIXABAN
     Indication: THROMBOSIS PROPHYLAXIS
     Dosage: ?          QUANTITY:5 MG MILLIGRAM(S);?
     Route: 048
     Dates: end: 20190328
  3. DIGESTION ENZYMES [Concomitant]
  4. MILK THISTLE [Concomitant]
     Active Substance: DIETARY SUPPLEMENT\HERBALS\MILK THISTLE
  5. TRYTOPHAN [Concomitant]
  6. SELENIUM [Concomitant]
     Active Substance: SELENIUM
  7. VITAMIN C [Concomitant]
     Active Substance: ASCORBIC ACID
  8. RESPERIDONE [Concomitant]
     Active Substance: RISPERIDONE
  9. MSM [Concomitant]
     Active Substance: DIMETHYL SULFONE
  10. OJK/PROBIOTC [Concomitant]
  11. C-PAP [Concomitant]

REACTIONS (4)
  - Bladder disorder [None]
  - Hypoaesthesia [None]
  - Haemorrhoids [None]
  - Gastrointestinal disorder [None]

NARRATIVE: CASE EVENT DATE: 20190315
